FAERS Safety Report 11711638 (Version 1)
Quarter: 2015Q4

REPORT INFORMATION
  Report Type: Spontaneous
  Country: US (occurrence: US)
  Receive Date: 20151104
  Receipt Date: 20151104
  Transmission Date: 20160304
  Serious: No
  Sender: FDA-Public Use
  Company Number: US-ELI_LILLY_AND_COMPANY-US201106002386

PATIENT
  Age: 76 Year
  Sex: Female

DRUGS (1)
  1. FORTEO [Suspect]
     Active Substance: TERIPARATIDE
     Indication: OSTEOPOROSIS
     Dosage: 20 UG, QD
     Route: 058
     Dates: start: 20110525

REACTIONS (6)
  - Joint swelling [Unknown]
  - Pain [Unknown]
  - Red blood cell sedimentation rate increased [Unknown]
  - Pain in extremity [Not Recovered/Not Resolved]
  - Peripheral swelling [Not Recovered/Not Resolved]
  - Arthralgia [Unknown]

NARRATIVE: CASE EVENT DATE: 20110525
